FAERS Safety Report 4360793-9 (Version None)
Quarter: 2004Q2

REPORT INFORMATION
  Report Type: 
  Country: None (occurrence: None)
  Receive Date: 20040514
  Receipt Date: 20040504
  Transmission Date: 20050107
  Serious: Yes (Life-Threatening, Hospitalization, Other)
  Sender: FDA-Public Use
  Company Number: 200412251BCC

PATIENT
  Age: 52 Year
  Sex: Female
  Weight: 75.7507 kg

DRUGS (1)
  1. ALKA-SELTZER PLUS NIGHT TIME COLD [Suspect]
     Indication: NASOPHARYNGITIS
     Dosage: QD, ORAL
     Route: 048
     Dates: start: 19990120

REACTIONS (2)
  - ANEURYSM [None]
  - DEAFNESS UNILATERAL [None]
